FAERS Safety Report 24571757 (Version 1)
Quarter: 2024Q4

REPORT INFORMATION
  Report Type: Spontaneous
  Country: MX (occurrence: MX)
  Receive Date: 20241101
  Receipt Date: 20241101
  Transmission Date: 20250114
  Serious: Yes (Other)
  Sender: Vantive US Healthcare
  Company Number: MX-VANTIVE-2024VAN020671

PATIENT
  Age: 78 Year
  Sex: Female
  Weight: 52 kg

DRUGS (3)
  1. DIANEAL W/ DEXTROSE 1.5% [Suspect]
     Active Substance: CALCIUM CHLORIDE\DEXTROSE\MAGNESIUM CHLORIDE\SODIUM CHLORIDE\SODIUM LACTATE
     Dosage: 1 BAG, 3 TIMES A WEEK (MONDAY, WEDNESDAY, FRIDAY)
     Route: 033
     Dates: start: 202409
  2. DIANEAL W/ DEXTROSE 1.5% [Suspect]
     Active Substance: CALCIUM CHLORIDE\DEXTROSE\MAGNESIUM CHLORIDE\SODIUM CHLORIDE\SODIUM LACTATE
     Dosage: 1 BAG. 3 DAYS (FRIDAY, SATURDAY, SUNDAY)
     Route: 033
     Dates: start: 20241018
  3. DIANEAL W/ DEXTROSE 1.5% [Suspect]
     Active Substance: CALCIUM CHLORIDE\DEXTROSE\MAGNESIUM CHLORIDE\SODIUM CHLORIDE\SODIUM LACTATE
     Dosage: 1 BAG, 3 TIMES A WEEK (MONDAY, WEDNESDAY, FRIDAY)
     Route: 033
     Dates: start: 20241021

REACTIONS (4)
  - Pulmonary oedema [Recovered/Resolved]
  - Feeling abnormal [Recovered/Resolved]
  - Swelling [Recovered/Resolved]
  - Malaise [Unknown]

NARRATIVE: CASE EVENT DATE: 20241018
